FAERS Safety Report 21573460 (Version 2)
Quarter: 2022Q4

REPORT INFORMATION
  Report Type: Spontaneous
  Country: US (occurrence: US)
  Receive Date: 20221109
  Receipt Date: 20221219
  Transmission Date: 20230113
  Serious: No
  Sender: FDA-Public Use
  Company Number: US-SA-SAC20221108000092

PATIENT
  Age: 15 Year
  Sex: Male
  Weight: 50.3 kg

DRUGS (12)
  1. DUPIXENT [Suspect]
     Active Substance: DUPILUMAB
     Indication: Asthma
     Dosage: 200 MG, QOW
     Route: 058
  2. DUPIXENT [Suspect]
     Active Substance: DUPILUMAB
     Indication: Dermatitis
  3. NUCALA [Concomitant]
     Active Substance: MEPOLIZUMAB
     Indication: Asthma
  4. ALBUTEROL SULFATE [Concomitant]
     Active Substance: ALBUTEROL SULFATE
  5. BENADRYL [Concomitant]
     Active Substance: DIPHENHYDRAMINE HYDROCHLORIDE
  6. COLACE [Concomitant]
     Active Substance: DOCUSATE SODIUM
  7. IRON [Concomitant]
     Active Substance: IRON
  8. ZOLOFT [Concomitant]
     Active Substance: SERTRALINE HYDROCHLORIDE
  9. FLONASE ALLERGY RELIEF [Concomitant]
     Active Substance: FLUTICASONE PROPIONATE
  10. ZYRTEC [Concomitant]
     Active Substance: CETIRIZINE HYDROCHLORIDE
  11. SINGULAIR [Concomitant]
     Active Substance: MONTELUKAST SODIUM
  12. DULERA [Concomitant]
     Active Substance: FORMOTEROL FUMARATE DIHYDRATE\MOMETASONE FUROATE

REACTIONS (4)
  - Lacrimation increased [Unknown]
  - Ocular hyperaemia [Unknown]
  - Conjunctivitis [Unknown]
  - Product use in unapproved indication [Unknown]
